FAERS Safety Report 6258938-9 (Version None)
Quarter: 2009Q3

REPORT INFORMATION
  Report Type: 
  Country: None (occurrence: None)
  Receive Date: 20090707
  Receipt Date: 20090630
  Transmission Date: 20100115
  Serious: Yes (Hospitalization)
  Sender: FDA-Public Use
  Company Number: US-GENENTECH-266349

PATIENT
  Sex: Male
  Weight: 73 kg

DRUGS (4)
  1. BEVACIZUMAB [Suspect]
     Indication: NON-SMALL CELL LUNG CANCER
     Dosage: 15 MG/KG, Q3W
     Route: 042
     Dates: start: 20080204
  2. LOVENOX [Suspect]
     Indication: THROMBOSIS
     Dosage: 80 MG, BID
     Route: 058
     Dates: start: 20080410
  3. MOTRIN [Suspect]
     Indication: PAIN
     Dosage: 200 MG, BID
     Route: 048
     Dates: start: 20080222
  4. ASPIRIN [Suspect]
     Indication: PROPHYLAXIS
     Dosage: 81 MG, QD
     Route: 048
     Dates: start: 20080916

REACTIONS (1)
  - GASTRITIS [None]
